FAERS Safety Report 25698910 (Version 1)
Quarter: 2025Q3

REPORT INFORMATION
  Report Type: Spontaneous
  Country: US (occurrence: US)
  Receive Date: 20250819
  Receipt Date: 20250819
  Transmission Date: 20251021
  Serious: Yes (Hospitalization)
  Sender: CHEPLAPHARM
  Company Number: US-CHEPLA-2025009788

PATIENT
  Age: 5 Year
  Sex: Female

DRUGS (1)
  1. HYDROXYUREA [Suspect]
     Active Substance: HYDROXYUREA
     Indication: Sickle cell disease

REACTIONS (8)
  - Acute chest syndrome [Recovered/Resolved]
  - Toxic shock syndrome streptococcal [Recovered/Resolved]
  - Acute kidney injury [Recovered/Resolved]
  - Hyperbilirubinaemia [Recovered/Resolved]
  - Jugular vein thrombosis [Recovered/Resolved]
  - Gallbladder enlargement [Recovering/Resolving]
  - Hypervolaemia [Recovered/Resolved]
  - Treatment noncompliance [Recovered/Resolved]
